FAERS Safety Report 17160149 (Version 1)
Quarter: 2019Q4

REPORT INFORMATION
  Report Type: Other
  Country: US (occurrence: US)
  Receive Date: 20191216
  Receipt Date: 20191216
  Transmission Date: 20200122
  Serious: No
  Sender: FDA-Public Use
  Company Number: US-AMAG PHARMACEUTICALS, INC.-AMAG201905589

PATIENT
  Age: 34 Year
  Sex: Female
  Weight: 77.18 kg

DRUGS (1)
  1. MAKENA [Suspect]
     Active Substance: HYDROXYPROGESTERONE CAPROATE
     Indication: PREMATURE DELIVERY
     Route: 058
     Dates: start: 20191003

REACTIONS (5)
  - Injection site swelling [Recovered/Resolved with Sequelae]
  - Inappropriate schedule of product administration [Unknown]
  - Injection site pain [Recovered/Resolved with Sequelae]
  - Injection site pruritus [Recovered/Resolved with Sequelae]
  - Injection site warmth [Recovered/Resolved with Sequelae]

NARRATIVE: CASE EVENT DATE: 20191003
